FAERS Safety Report 17977166 (Version 4)
Quarter: 2021Q2

REPORT INFORMATION
  Report Type: Other
  Country: JP (occurrence: JP)
  Receive Date: 20200702
  Receipt Date: 20210507
  Transmission Date: 20210717
  Serious: Yes (Hospitalization, Congenital Anomaly)
  Sender: FDA-Public Use
  Company Number: JP-ROCHE-2629148

PATIENT
  Age: 0 Day
  Sex: Female
  Weight: 2.58 kg

DRUGS (13)
  1. HUMALOG [Concomitant]
     Active Substance: INSULIN LISPRO
     Indication: DIABETES MELLITUS
     Route: 064
     Dates: start: 20190910, end: 20200520
  2. LANTUS XR [Concomitant]
     Active Substance: INSULIN GLARGINE
     Route: 064
     Dates: start: 20190910, end: 20200520
  3. RELVAR [Concomitant]
     Active Substance: FLUTICASONE FUROATE\VILANTEROL TRIFENATATE
     Indication: ASTHMA
     Route: 064
  4. NEO?MEDROL EE [Concomitant]
     Indication: DERMATITIS ATOPIC
     Route: 064
  5. MEPTIN AIR [Concomitant]
     Active Substance: PROCATEROL HYDROCHLORIDE
     Route: 064
  6. ALECENSA [Suspect]
     Active Substance: ALECTINIB HYDROCHLORIDE
     Route: 064
     Dates: start: 20191008
  7. PRANLUKAST [Concomitant]
     Active Substance: PRANLUKAST
     Indication: ASTHMA
     Route: 064
  8. INSULIN [Concomitant]
     Active Substance: INSULIN NOS
     Route: 064
     Dates: start: 20190910, end: 20191219
  9. ALECENSA [Suspect]
     Active Substance: ALECTINIB HYDROCHLORIDE
     Indication: PRODUCT USED FOR UNKNOWN INDICATION
     Route: 064
     Dates: start: 20191008
  10. CILOSTAZOL. [Suspect]
     Active Substance: CILOSTAZOL
     Indication: PRODUCT USED FOR UNKNOWN INDICATION
     Route: 064
     Dates: start: 20190913, end: 20200402
  11. CILOSTAZOL. [Suspect]
     Active Substance: CILOSTAZOL
     Indication: CEREBRAL INFARCTION
  12. PRANLUKAST [Concomitant]
     Active Substance: PRANLUKAST
     Indication: DERMATITIS ATOPIC
  13. INSULIN [Concomitant]
     Active Substance: INSULIN NOS
     Route: 064
     Dates: start: 20200507

REACTIONS (3)
  - Foetal exposure during pregnancy [Unknown]
  - Poor feeding infant [Unknown]
  - Ventricular septal defect [Not Recovered/Not Resolved]

NARRATIVE: CASE EVENT DATE: 20200521
